FAERS Safety Report 14110294 (Version 2)
Quarter: 2017Q4

REPORT INFORMATION
  Report Type: Spontaneous
  Country: US (occurrence: US)
  Receive Date: 20171020
  Receipt Date: 20171123
  Transmission Date: 20180321
  Serious: No
  Sender: FDA-Public Use
  Company Number: US-PFIZER INC-2017450387

PATIENT
  Age: 66 Year
  Sex: Female
  Weight: 78.47 kg

DRUGS (1)
  1. ADVIL [Suspect]
     Active Substance: IBUPROFEN
     Indication: MYALGIA
     Dosage: 2 LIQUIGEL MINIS BY MOUTH
     Route: 048
     Dates: start: 201709

REACTIONS (3)
  - Poor quality drug administered [Recovered/Resolved]
  - Malaise [Recovered/Resolved]
  - Product colour issue [Recovered/Resolved]

NARRATIVE: CASE EVENT DATE: 201709
